FAERS Safety Report 8424706-2 (Version None)
Quarter: 2012Q2

REPORT INFORMATION
  Report Type: 
  Country: None (occurrence: None)
  Receive Date: 20120611
  Receipt Date: 20120601
  Transmission Date: 20120825
  Serious: No
  Sender: FDA-Public Use
  Company Number: US-BIOGENIDEC-2012BI005144

PATIENT
  Sex: Female

DRUGS (4)
  1. LANTUS [Concomitant]
     Indication: DIABETES MELLITUS
  2. AVONEX [Suspect]
     Indication: MULTIPLE SCLEROSIS
     Route: 030
     Dates: start: 20010904
  3. AVONEX [Suspect]
     Route: 030
  4. NOVOLOG [Concomitant]
     Indication: DIABETES MELLITUS

REACTIONS (5)
  - FALL [None]
  - MUSCULAR WEAKNESS [None]
  - AMNESIA [None]
  - GAIT DISTURBANCE [None]
  - MEMORY IMPAIRMENT [None]
